FAERS Safety Report 22001833 (Version 1)
Quarter: 2023Q1

REPORT INFORMATION
  Report Type: Spontaneous
  Country: CN (occurrence: CN)
  Receive Date: 20230216
  Receipt Date: 20230216
  Transmission Date: 20230418
  Serious: Yes (Other)
  Sender: FDA-Public Use
  Company Number: CN-BAYER-2023A015204

PATIENT
  Age: 83 Year
  Sex: Male
  Weight: 45 kg

DRUGS (1)
  1. AVELOX [Suspect]
     Active Substance: MOXIFLOXACIN HYDROCHLORIDE
     Indication: Pneumonia
     Dosage: 0.4 G, QD
     Route: 041
     Dates: start: 20221116, end: 20221120

REACTIONS (4)
  - Depressed level of consciousness [Recovering/Resolving]
  - Incoherent [Recovering/Resolving]
  - Disorganised speech [None]
  - Abnormal behaviour [None]

NARRATIVE: CASE EVENT DATE: 20221120
